FAERS Safety Report 14008293 (Version 1)
Quarter: 2017Q3

REPORT INFORMATION
  Report Type: Spontaneous
  Country: US (occurrence: None)
  Receive Date: 20170925
  Receipt Date: 20170925
  Transmission Date: 20171128
  Serious: No
  Sender: FDA-Public Use
  Company Number: None

PATIENT
  Age: 74 Year
  Sex: Female

DRUGS (1)
  1. IMATINIB 100MG SUN PHARMACEUTICAL INDUSTRIES. [Suspect]
     Active Substance: IMATINIB MESYLATE
     Indication: PRODUCT USED FOR UNKNOWN INDICATION
     Dosage: 100MGX2=200MG QD PO
     Route: 048
     Dates: start: 20161130

REACTIONS (1)
  - Eye swelling [None]

NARRATIVE: CASE EVENT DATE: 20170915
